FAERS Safety Report 7648715-6 (Version None)
Quarter: 2011Q3

REPORT INFORMATION
  Report Type: 
  Country: None (occurrence: None)
  Receive Date: 20110801
  Receipt Date: 20110722
  Transmission Date: 20111222
  Serious: Yes (Other)
  Sender: FDA-Public Use
  Company Number: PHHY2011BR66686

PATIENT
  Sex: Male

DRUGS (1)
  1. EXELON [Suspect]
     Dosage: 1.5 MG, UNK
     Route: 048

REACTIONS (9)
  - AORTIC DILATATION [None]
  - DYSPEPSIA [None]
  - MALAISE [None]
  - FEELING ABNORMAL [None]
  - VOMITING [None]
  - PNEUMONIA [None]
  - SINUSITIS [None]
  - HALLUCINATION [None]
  - DECREASED APPETITE [None]
